FAERS Safety Report 21400777 (Version 2)
Quarter: 2022Q4

REPORT INFORMATION
  Report Type: Report from Study
  Country: MX (occurrence: MX)
  Receive Date: 20221003
  Receipt Date: 20221024
  Transmission Date: 20230113
  Serious: Yes (Death, Hospitalization, Other)
  Sender: FDA-Public Use
  Company Number: MX-NOVARTISPH-NVSC2022MX222189

PATIENT
  Age: 89 Year
  Sex: Female
  Weight: 50 kg

DRUGS (2)
  1. EXELON [Suspect]
     Active Substance: RIVASTIGMINE TARTRATE
     Indication: Dementia Alzheimer^s type
     Dosage: 1 DOSAGE FORM, QD (EXTENDED RELEASE )
     Route: 062
     Dates: start: 2017, end: 2020
  2. EXELON [Suspect]
     Active Substance: RIVASTIGMINE TARTRATE
     Dosage: 1 DOSAGE FORM, QD  (EXTENDED RELEASE)
     Route: 062
     Dates: start: 2021, end: 2021

REACTIONS (2)
  - Cerebrovascular accident [Fatal]
  - Weight decreased [Unknown]

NARRATIVE: CASE EVENT DATE: 20210701
